FAERS Safety Report 8438786-1 (Version None)
Quarter: 2012Q2

REPORT INFORMATION
  Report Type: 
  Country: None (occurrence: None)
  Receive Date: 20120606
  Receipt Date: 20120523
  Transmission Date: 20120825
  Serious: Yes (Hospitalization, Other)
  Sender: FDA-Public Use
  Company Number: 2012SP027885

PATIENT
  Sex: Female

DRUGS (2)
  1. PEG-INTRON [Suspect]
     Indication: HEPATITIS C
     Dates: start: 20020101, end: 20030101
  2. RIBAVIRIN [Suspect]
     Indication: HEPATITIS C
     Dates: start: 20020101, end: 20030101

REACTIONS (12)
  - BLOOD TRIGLYCERIDES INCREASED [None]
  - DYSPNOEA [None]
  - HYPOACUSIS [None]
  - VISION BLURRED [None]
  - LUNG DISORDER [None]
  - THIRST [None]
  - INTERVERTEBRAL DISC PROTRUSION [None]
  - SPINAL COLUMN STENOSIS [None]
  - NERVE COMPRESSION [None]
  - SARCOIDOSIS [None]
  - TINNITUS [None]
  - URINARY INCONTINENCE [None]
